FAERS Safety Report 4935176-0 (Version None)
Quarter: 2006Q1

REPORT INFORMATION
  Report Type: 
  Country: None (occurrence: None)
  Receive Date: 20060303
  Receipt Date: 20060303
  Transmission Date: 20060701
  Serious: Yes (Hospitalization, Other)
  Sender: FDA-Public Use
  Company Number: None

PATIENT
  Age: 14 Year
  Sex: Female
  Weight: 18.1439 kg

DRUGS (10)
  1. CYTARABINE [Suspect]
     Indication: LYMPHOCYTIC LEUKAEMIA
     Dosage: 70 MG
     Dates: start: 20060203, end: 20060203
  2. CYTARABINE [Suspect]
     Indication: LYMPHOCYTIC LEUKAEMIA
     Dosage: 70 MG
     Dates: start: 20060218
  3. DAUNORUBICIN HCL [Suspect]
     Dosage: 92.5 MG
     Dates: start: 20060204, end: 20060218
  4. DAUNORUBICIN HCL [Suspect]
     Dosage: 92.5 MG
     Dates: start: 20060218
  5. METHOTREXATE [Suspect]
     Dosage: 15 MG
     Dates: start: 20060210, end: 20060210
  6. METHOTREXATE [Suspect]
     Dosage: 15 MG
     Dates: start: 20060218
  7. PEG-L-ASPARAGINASE (K-H) [Suspect]
     Dosage: 3700 IU
     Dates: start: 20060207, end: 20060207
  8. PEG-L-ASPARAGINASE (K-H) [Suspect]
     Dosage: 3700 IU
     Dates: start: 20060218
  9. VINCRISTINE SULFATE [Suspect]
     Dosage: 6 MG
     Dates: start: 20060204, end: 20060218
  10. VINCRISTINE SULFATE [Suspect]
     Dosage: 6 MG
     Dates: start: 20060218

REACTIONS (3)
  - HAEMOLYSIS [None]
  - HEPATIC STEATOSIS [None]
  - WEIGHT DECREASED [None]
